FAERS Safety Report 8912148 (Version 1)
Quarter: 2012Q4

REPORT INFORMATION
  Report Type: 
  Country: US (occurrence: US)
  Receive Date: 20121116
  Receipt Date: 20121116
  Transmission Date: 20130627
  Serious: Yes (Other)
  Sender: FDA-Public Use
  Company Number: US-ROCHE-1061255

PATIENT
  Age: 36 None
  Sex: Male
  Weight: 85.35 kg

DRUGS (3)
  1. ACCUTANE [Suspect]
     Indication: ACNE CYSTIC
     Route: 065
     Dates: start: 1985, end: 1990
  2. ACCUTANE [Suspect]
     Dosage: 20 mg - 80 mg
     Route: 065
     Dates: start: 19961024, end: 19970326
  3. STEROID NOS [Concomitant]

REACTIONS (7)
  - Inflammatory bowel disease [Unknown]
  - Colitis ulcerative [Unknown]
  - Depression [Unknown]
  - Intestinal haemorrhage [Unknown]
  - Colitis ulcerative [Unknown]
  - Xerosis [Unknown]
  - Conjunctivitis [Unknown]
